FAERS Safety Report 10396732 (Version 1)
Quarter: 2014Q3

REPORT INFORMATION
  Report Type: Spontaneous
  Country: FR (occurrence: FR)
  Receive Date: 20140820
  Receipt Date: 20140820
  Transmission Date: 20150326
  Serious: Yes (Other)
  Sender: FDA-Public Use
  Company Number: FR-GLAXOSMITHKLINE-B1023393A

PATIENT
  Age: 81 Year
  Sex: Male

DRUGS (18)
  1. ZELITREX [Suspect]
     Active Substance: VALACYCLOVIR HYDROCHLORIDE
     Indication: PRODUCT USED FOR UNKNOWN INDICATION
     Dosage: 1000MG PER DAY
     Route: 048
     Dates: start: 20140409, end: 20140416
  2. AUGMENTIN [Concomitant]
     Active Substance: AMOXICILLIN\CLAVULANATE POTASSIUM
     Indication: LUNG DISORDER
     Route: 065
     Dates: start: 201403, end: 201403
  3. RIMIFON [Concomitant]
     Active Substance: ISONIAZID
     Indication: TUBERCULOSIS
     Route: 048
     Dates: start: 20140408
  4. XYLOCAINE VISCOUS [Concomitant]
     Active Substance: LIDOCAINE HYDROCHLORIDE
     Route: 048
     Dates: start: 20140407
  5. POTASSIUM CHLORURE [Concomitant]
     Route: 042
     Dates: start: 20140404, end: 20140415
  6. VITAMIN K1 [Concomitant]
     Active Substance: PHYTONADIONE
     Dosage: 10MG PER DAY
     Dates: start: 20140329, end: 20140424
  7. GLUCOSE [Concomitant]
     Active Substance: DEXTROSE
     Route: 042
     Dates: start: 20140331, end: 20140410
  8. ASPEGIC [Concomitant]
     Active Substance: ASPIRIN DL-LYSINE
     Route: 048
     Dates: start: 20140404, end: 20140415
  9. LOVENOX [Suspect]
     Active Substance: ENOXAPARIN SODIUM
     Indication: PRODUCT USED FOR UNKNOWN INDICATION
     Dosage: 2000IUAX PER DAY
     Route: 058
     Dates: start: 20140403, end: 20140418
  10. FUROSEMIDE. [Concomitant]
     Active Substance: FUROSEMIDE
     Route: 042
     Dates: start: 20140401, end: 20140407
  11. AMIKACINE [Concomitant]
     Active Substance: AMIKACIN
     Dosage: 1200MG PER DAY
     Route: 042
     Dates: start: 20140401, end: 20140402
  12. ETHAMBUTOL [Concomitant]
     Active Substance: ETHAMBUTOL HYDROCHLORIDE
     Indication: TUBERCULOSIS
     Dosage: 1500MG PER DAY
     Route: 048
     Dates: start: 20140401
  13. SODIUM BICARBONATE. [Concomitant]
     Active Substance: SODIUM BICARBONATE
     Route: 048
     Dates: start: 20140407
  14. VITAMINE B1 [Concomitant]
     Dosage: 4UNIT PER DAY
     Dates: start: 20140328
  15. ZYVOXID [Suspect]
     Active Substance: LINEZOLID
     Indication: TUBERCULOSIS
     Dosage: 1200MG PER DAY
     Route: 048
     Dates: start: 20140401, end: 20140418
  16. LEVOCARNIL [Concomitant]
     Active Substance: LEVOCARNITINE
     Dates: start: 20140403, end: 20140410
  17. VITAMIN B6 [Concomitant]
     Active Substance: PYRIDOXINE HYDROCHLORIDE
     Dosage: 4UNIT PER DAY
     Dates: start: 20140328
  18. RIMACTAN [Concomitant]
     Active Substance: RIFAMPIN
     Indication: TUBERCULOSIS
     Dates: start: 20140410, end: 20140414

REACTIONS (1)
  - Thrombocytopenia [Recovered/Resolved]

NARRATIVE: CASE EVENT DATE: 201404
